FAERS Safety Report 13913957 (Version 1)
Quarter: 2017Q3

REPORT INFORMATION
  Report Type: Spontaneous
  Country: US (occurrence: US)
  Receive Date: 20170828
  Receipt Date: 20170828
  Transmission Date: 20171127
  Serious: No
  Sender: FDA-Public Use
  Company Number: US-ROCHE-1140564

PATIENT
  Sex: Male
  Weight: 53.8 kg

DRUGS (4)
  1. NUTROPIN AQ [Suspect]
     Active Substance: SOMATROPIN
     Dosage: (40 UNITS)
     Route: 065
     Dates: start: 20000419
  2. ADDERALL [Concomitant]
     Active Substance: AMPHETAMINE ASPARTATE\AMPHETAMINE SULFATE\DEXTROAMPHETAMINE SACCHARATE\DEXTROAMPHETAMINE SULFATE
     Route: 065
  3. NUTROPIN AQ [Suspect]
     Active Substance: SOMATROPIN
     Indication: GROWTH HORMONE DEFICIENCY
     Dosage: 0.38 CC
     Route: 065
     Dates: start: 19990702
  4. ADVIL [Concomitant]
     Active Substance: IBUPROFEN

REACTIONS (2)
  - Thirst [Unknown]
  - Temperature intolerance [Unknown]
